FAERS Safety Report 20749203 (Version 3)
Quarter: 2022Q2

REPORT INFORMATION
  Report Type: Report from Study
  Country: NL (occurrence: None)
  Receive Date: 20220426
  Receipt Date: 20220429
  Transmission Date: 20220720
  Serious: No
  Sender: FDA-Public Use
  Company Number: NL-Eisai Medical Research-EC-2022-113654

PATIENT
  Age: 36 Year
  Sex: Male
  Weight: 90.2 kg

DRUGS (8)
  1. LENVATINIB [Suspect]
     Active Substance: LENVATINIB
     Indication: Gallbladder adenocarcinoma
     Route: 048
     Dates: start: 20211217, end: 202204
  2. PEMBROLIZUMAB [Suspect]
     Active Substance: PEMBROLIZUMAB
     Indication: Gallbladder adenocarcinoma
     Route: 042
     Dates: start: 20211217, end: 20220128
  3. PEMBROLIZUMAB [Suspect]
     Active Substance: PEMBROLIZUMAB
     Route: 042
     Dates: start: 20220311, end: 20220311
  4. BELZUTIFAN [Suspect]
     Active Substance: BELZUTIFAN
     Indication: Gallbladder adenocarcinoma
     Route: 048
     Dates: start: 20211217, end: 202204
  5. MORPHINE [Concomitant]
     Active Substance: MORPHINE
     Dates: start: 20211217
  6. PANTOPRAZOLE [Concomitant]
     Active Substance: PANTOPRAZOLE
     Dates: start: 20211129
  7. CICLOPIROX [Concomitant]
     Active Substance: CICLOPIROX
     Dates: start: 20211215
  8. ACETAMINOPHEN [Concomitant]
     Active Substance: ACETAMINOPHEN
     Dates: start: 20220328

REACTIONS (1)
  - Hepatic enzyme increased [Not Recovered/Not Resolved]

NARRATIVE: CASE EVENT DATE: 20220415
